FAERS Safety Report 12114060 (Version 1)
Quarter: 2016Q1

REPORT INFORMATION
  Report Type: Spontaneous
  Country: US (occurrence: US)
  Receive Date: 20160225
  Receipt Date: 20160225
  Transmission Date: 20160526
  Serious: No
  Sender: FDA-Public Use
  Company Number: US-PFIZER INC-2016114894

PATIENT
  Age: 49 Year
  Sex: Female
  Weight: 91 kg

DRUGS (2)
  1. OXYCODONE [Concomitant]
     Active Substance: OXYCODONE
     Indication: SHOULDER OPERATION
  2. GABAPENTIN. [Suspect]
     Active Substance: GABAPENTIN
     Indication: FIBROMYALGIA
     Dosage: 600 MG, 3X/DAY

REACTIONS (2)
  - Drug ineffective for unapproved indication [Unknown]
  - Urinary tract infection [Not Recovered/Not Resolved]
